FAERS Safety Report 5219394-2 (Version None)
Quarter: 2007Q1

REPORT INFORMATION
  Report Type: 
  Country: None (occurrence: None)
  Receive Date: 20070125
  Receipt Date: 20060907
  Transmission Date: 20070707
  Serious: No
  Sender: FDA-Public Use
  Company Number: US-BRISTOL-MYERS SQUIBB COMPANY-13501218

PATIENT
  Age: 44 Year
  Sex: Male
  Weight: 77 kg

DRUGS (3)
  1. IFEX [Suspect]
     Indication: SARCOMA
     Route: 042
     Dates: start: 20060827, end: 20060828
  2. MESNA [Concomitant]
     Indication: SARCOMA
     Dates: start: 20060827, end: 20060905
  3. DOXORUBICIN HCL [Concomitant]
     Indication: SARCOMA
     Route: 042
     Dates: start: 20060827

REACTIONS (1)
  - BLOOD URINE PRESENT [None]
